FAERS Safety Report 9951821 (Version 3)
Quarter: 2015Q1

REPORT INFORMATION
  Report Type: Report from Study
  Country: US (occurrence: US)
  Receive Date: 20140304
  Receipt Date: 20150213
  Transmission Date: 20150721
  Serious: Yes (Hospitalization, Other)
  Sender: FDA-Public Use
  Company Number: US-ABBVIE-13P-163-1049448-00

PATIENT
  Age: 41 Year
  Sex: Male

DRUGS (18)
  1. IMURAN [Suspect]
     Active Substance: AZATHIOPRINE
     Indication: PRODUCT USED FOR UNKNOWN INDICATION
  2. PERCOCET [Concomitant]
     Active Substance: ACETAMINOPHEN\OXYCODONE HYDROCHLORIDE
     Indication: PAIN
     Dosage: 7.5/325 MG, 4 TIMES A DAY AS NEEDED
  3. LASIX [Concomitant]
     Active Substance: FUROSEMIDE
     Indication: PERIPHERAL SWELLING
  4. HYDROCORTISONE. [Concomitant]
     Active Substance: HYDROCORTISONE
     Indication: PRODUCT USED FOR UNKNOWN INDICATION
  5. TRIAMCINOLONE [Concomitant]
     Active Substance: TRIAMCINOLONE
     Indication: PRODUCT USED FOR UNKNOWN INDICATION
     Dosage: DAILY
     Route: 061
  6. LISINOPRIL. [Concomitant]
     Active Substance: LISINOPRIL
     Indication: HYPERTENSION
  7. GABAPENTIN. [Concomitant]
     Active Substance: GABAPENTIN
     Indication: PAIN
     Dosage: 3000 MG DAILY - 600MG IN AM, 2400MG AT HOUR OF SLEEP
  8. RANITIDINE [Concomitant]
     Active Substance: RANITIDINE\RANITIDINE HYDROCHLORIDE
     Indication: GASTRIC DISORDER
  9. LOMOTIL [Concomitant]
     Active Substance: ATROPINE SULFATE\DIPHENOXYLATE HYDROCHLORIDE
     Indication: PRODUCT USED FOR UNKNOWN INDICATION
  10. HUMIRA [Suspect]
     Active Substance: ADALIMUMAB
     Indication: COLITIS ULCERATIVE
     Dates: start: 20121012
  11. BUPROPION 300 MG ER (WELLBUTRIN) [Concomitant]
     Indication: DEPRESSION
  12. CELEBREX [Concomitant]
     Active Substance: CELECOXIB
     Indication: PAIN
  13. LIALDA [Concomitant]
     Active Substance: MESALAMINE
     Indication: PRODUCT USED FOR UNKNOWN INDICATION
     Dosage: 1.2 MG 2 TABLETS DAILY
  14. MORPHONE EXTENDED RELEASE [Concomitant]
     Indication: PRODUCT USED FOR UNKNOWN INDICATION
  15. PROCTOFOAM [Concomitant]
     Active Substance: PRAMOXINE HYDROCHLORIDE
     Indication: PRODUCT USED FOR UNKNOWN INDICATION
  16. HUMIRA [Suspect]
     Active Substance: ADALIMUMAB
  17. TRAMADOL ER [Concomitant]
     Active Substance: TRAMADOL HYDROCHLORIDE
     Indication: PAIN
  18. LOPERAMIDE [Concomitant]
     Active Substance: LOPERAMIDE
     Indication: PRODUCT USED FOR UNKNOWN INDICATION

REACTIONS (8)
  - Staphylococcal infection [Unknown]
  - Skin lesion [Not Recovered/Not Resolved]
  - Immunosuppression [Unknown]
  - Pruritus [Unknown]
  - Skin infection [Not Recovered/Not Resolved]
  - Insomnia [Unknown]
  - Colitis ulcerative [Not Recovered/Not Resolved]
  - Injection site bruising [Recovering/Resolving]

NARRATIVE: CASE EVENT DATE: 20121012
